FAERS Safety Report 9967363 (Version 2)
Quarter: 2014Q1

REPORT INFORMATION
  Report Type: Report from Study
  Country: US (occurrence: US)
  Receive Date: 20140305
  Receipt Date: 20140305
  Transmission Date: 20141002
  Serious: No
  Sender: FDA-Public Use
  Company Number: US-ABBVIE-13P-163-1136463-00

PATIENT
  Age: 58 Year
  Sex: Female

DRUGS (22)
  1. HUMIRA [Suspect]
     Indication: RHEUMATOID ARTHRITIS
     Route: 058
     Dates: start: 20130811
  2. CLOTRIMAZOLE AND BETAMETHASONE [Concomitant]
     Indication: PRODUCT USED FOR UNKNOWN INDICATION
     Dosage: 1/1.05%; AS NEEDED
  3. CRESTOR [Concomitant]
     Indication: BLOOD CHOLESTEROL INCREASED
     Dosage: 10MG DAILY
     Route: 048
  4. CYMBALTA [Concomitant]
     Indication: PAIN
     Dosage: 90MG DAILY
     Route: 048
  5. CYMBALTA [Concomitant]
     Indication: DEPRESSION
  6. LEVOTHYROXINE [Concomitant]
     Indication: HYPOTHYROIDISM
  7. LIDODERM [Concomitant]
     Indication: PAIN
  8. LIOTHYRONINE [Concomitant]
     Indication: PRODUCT USED FOR UNKNOWN INDICATION
     Dosage: 5MCG DAILY
     Route: 048
  9. NAPROXEN [Concomitant]
     Indication: PRODUCT USED FOR UNKNOWN INDICATION
  10. NEXIUM [Concomitant]
     Indication: GASTROOESOPHAGEAL REFLUX DISEASE
     Dosage: 40MG DAILY
  11. PROPANOLOL [Concomitant]
     Indication: BLOOD PRESSURE
     Dosage: 120MG DAILY
     Route: 048
  12. RECLAST [Concomitant]
     Indication: OSTEOPOROSIS
     Route: 042
  13. TIZANIDINE [Concomitant]
     Indication: PAIN
     Dosage: AS NEEDED
     Route: 048
  14. VENTOLIN [Concomitant]
     Indication: PRODUCT USED FOR UNKNOWN INDICATION
     Dosage: USED RARELY, NOT EVEN ONCE A WEEK
  15. VESICARE [Concomitant]
     Indication: INCONTINENCE
  16. AMBIEN [Concomitant]
     Indication: INSOMNIA
     Dosage: NIGHTLY
     Route: 048
  17. ZONALON [Concomitant]
     Indication: PRURITUS
  18. TRAZODONE [Concomitant]
     Indication: INSOMNIA
     Dosage: NIGHTLY
     Route: 048
  19. PREDNISONE [Concomitant]
     Indication: PAIN
     Dosage: 10MG DAILY
     Route: 048
  20. ANTIFUNGAL MEDICINE [Concomitant]
     Indication: DRUG HYPERSENSITIVITY
  21. VITAMIN D3 [Concomitant]
     Indication: VITAMIN SUPPLEMENTATION
  22. ALLEGRA [Concomitant]
     Indication: HYPERSENSITIVITY

REACTIONS (4)
  - Injection site pain [Recovered/Resolved]
  - Injection site pain [Recovered/Resolved]
  - Fungal infection [Not Recovered/Not Resolved]
  - Lacrimation increased [Not Recovered/Not Resolved]
